FAERS Safety Report 9790657 (Version 1)
Quarter: 2013Q4

REPORT INFORMATION
  Report Type: Spontaneous
  Country: US (occurrence: US)
  Receive Date: 20131231
  Receipt Date: 20131231
  Transmission Date: 20140711
  Serious: Yes (Other)
  Sender: FDA-Public Use
  Company Number: US-PFIZER INC-2013373847

PATIENT
  Age: 94 Year
  Sex: Female

DRUGS (3)
  1. LYRICA [Suspect]
     Indication: NEURALGIA
     Dosage: 50 MG, DAILY
     Dates: start: 20131206, end: 201312
  2. LYRICA [Suspect]
     Dosage: 100 MG, DAILY
     Dates: start: 201312
  3. VERAPAMIL [Concomitant]
     Dosage: 25 MG, DAILY

REACTIONS (4)
  - Decubitus ulcer [Unknown]
  - Contusion [Unknown]
  - Local swelling [Unknown]
  - Drug ineffective [Unknown]
